FAERS Safety Report 8456012-4 (Version None)
Quarter: 2012Q2

REPORT INFORMATION
  Report Type: 
  Country: None (occurrence: None)
  Receive Date: 20120621
  Receipt Date: 20120615
  Transmission Date: 20120825
  Serious: Yes (Hospitalization)
  Sender: FDA-Public Use
  Company Number: PHHY2012IT052008

PATIENT
  Sex: Female

DRUGS (2)
  1. TIZANIDINE HYDROCHLORIDE [Suspect]
     Dosage: 1 DF, TOTAL
     Route: 048
     Dates: start: 20120612, end: 20120612
  2. DICLOFENAC SODIUM [Suspect]
     Dosage: 1 DF, TOTAL
     Route: 048
     Dates: start: 20120612, end: 20120612

REACTIONS (1)
  - ASTHMATIC CRISIS [None]
